FAERS Safety Report 6708121-5 (Version None)
Quarter: 2010Q2

REPORT INFORMATION
  Report Type: 
  Country: None (occurrence: None)
  Receive Date: 20100503
  Receipt Date: 20090313
  Transmission Date: 20101027
  Serious: Yes (Other)
  Sender: FDA-Public Use
  Company Number: US-ASTRAZENECA-2009UW06691

PATIENT
  Age: 72 Year
  Sex: Female

DRUGS (3)
  1. NEXIUM [Suspect]
     Indication: GASTROOESOPHAGEAL REFLUX DISEASE
     Route: 048
     Dates: start: 19980101
  2. ATACAND [Concomitant]
  3. THYROID TAB [Concomitant]

REACTIONS (1)
  - POLYMYALGIA RHEUMATICA [None]
